FAERS Safety Report 20182715 (Version 2)
Quarter: 2021Q4

REPORT INFORMATION
  Report Type: Report from Study
  Country: IE (occurrence: IE)
  Receive Date: 20211214
  Receipt Date: 20211224
  Transmission Date: 20220303
  Serious: Yes (Other)
  Sender: FDA-Public Use
  Company Number: IE-MYLANLABS-2021M1086421

PATIENT
  Sex: Female

DRUGS (2)
  1. GLATIRAMER ACETATE [Suspect]
     Active Substance: GLATIRAMER ACETATE
     Indication: Multiple sclerosis
     Dosage: 40 MILLIGRAM, 3XW
     Route: 058
     Dates: start: 20211119
  2. Covid-19 vaccine [Concomitant]
     Dosage: UNK
     Dates: start: 20211129, end: 20211129

REACTIONS (7)
  - Back pain [Not Recovered/Not Resolved]
  - Pain in extremity [Not Recovered/Not Resolved]
  - Burning sensation [Not Recovered/Not Resolved]
  - Erythema [Recovering/Resolving]
  - Pain [Recovered/Resolved]
  - Eye disorder [Recovering/Resolving]
  - Injection site pain [Recovered/Resolved]

NARRATIVE: CASE EVENT DATE: 20211119
